FAERS Safety Report 9222681 (Version 2)
Quarter: 2013Q2

REPORT INFORMATION
  Report Type: Report from Study
  Country: RS (occurrence: RS)
  Receive Date: 20130410
  Receipt Date: 20130624
  Transmission Date: 20140414
  Serious: Yes (Death, Other)
  Sender: FDA-Public Use
  Company Number: RS-ROCHE-1208744

PATIENT
  Sex: 0

DRUGS (1)
  1. ALTEPLASE [Suspect]
     Indication: ISCHAEMIC STROKE
     Route: 065

REACTIONS (3)
  - Death [Fatal]
  - Haemorrhagic transformation stroke [Unknown]
  - Cerebral haemorrhage [Unknown]
